FAERS Safety Report 15122071 (Version 1)
Quarter: 2018Q3

REPORT INFORMATION
  Report Type: Spontaneous
  Country: IT (occurrence: IT)
  Receive Date: 20180709
  Receipt Date: 20180709
  Transmission Date: 20181010
  Serious: Yes (Hospitalization)
  Sender: FDA-Public Use
  Company Number: IT-ALLERGAN-1833615US

PATIENT
  Age: 42 Year
  Sex: Female

DRUGS (7)
  1. MEMANTINE HCL ? BP [Suspect]
     Active Substance: MEMANTINE
     Indication: DEMENTIA ALZHEIMER^S TYPE
     Dosage: 10 MG, QD
     Route: 048
     Dates: start: 20170101, end: 20171106
  2. ONBREZ BREEZHALER [Concomitant]
     Active Substance: INDACATEROL
  3. GADRAL [Concomitant]
     Active Substance: MAGALDRATE
  4. ENTACT [Concomitant]
     Active Substance: ESCITALOPRAM OXALATE
  5. METFORAL [Concomitant]
     Active Substance: METFORMIN HYDROCHLORIDE
     Dosage: 850 MG, QD
  6. SEEBRI [Concomitant]
     Active Substance: GLYCOPYRRONIUM
  7. DONA [Concomitant]

REACTIONS (2)
  - Vertigo [Unknown]
  - Balance disorder [Unknown]

NARRATIVE: CASE EVENT DATE: 20171030
